FAERS Safety Report 19956647 (Version 3)
Quarter: 2025Q1

REPORT INFORMATION
  Report Type: Report from Study
  Country: US (occurrence: US)
  Receive Date: 20211014
  Receipt Date: 20250206
  Transmission Date: 20250409
  Serious: No
  Sender: TAKEDA
  Company Number: US-TAKEDA-2021TUS061880

PATIENT
  Sex: Female

DRUGS (8)
  1. BRIGATINIB [Suspect]
     Active Substance: BRIGATINIB
     Indication: Lung neoplasm malignant
     Dosage: 90 MILLIGRAM, QD
     Dates: start: 202110
  2. BRIGATINIB [Suspect]
     Active Substance: BRIGATINIB
     Dosage: 90 MILLIGRAM, QD
  3. SYNTHROID [Concomitant]
     Active Substance: LEVOTHYROXINE SODIUM
  4. CALCIUM [Concomitant]
     Active Substance: CALCIUM
  5. LOSARTAN [Concomitant]
     Active Substance: LOSARTAN
  6. LOPERAMIDE [Concomitant]
     Active Substance: LOPERAMIDE
  7. BENADRYL [Concomitant]
     Active Substance: DIPHENHYDRAMINE HYDROCHLORIDE
  8. CHOLESTYRAMINE [Concomitant]
     Active Substance: CHOLESTYRAMINE

REACTIONS (3)
  - Pruritus [Unknown]
  - Cough [Unknown]
  - Diarrhoea [Recovering/Resolving]
